FAERS Safety Report 24594996 (Version 1)
Quarter: 2024Q4

REPORT INFORMATION
  Report Type: Spontaneous
  Country: US (occurrence: US)
  Receive Date: 20241108
  Receipt Date: 20241108
  Transmission Date: 20250115
  Serious: Yes (Death, Life-Threatening, Hospitalization)
  Sender: MERCK
  Company Number: US-009507513-2410USA013945

PATIENT
  Age: 82 Year
  Sex: Female

DRUGS (1)
  1. STROMECTOL [Suspect]
     Active Substance: IVERMECTIN
     Indication: COVID-19
     Dosage: 3 MILLIGRAM, TID (TOTAL OF 45 MG FOR 5 DAYS)
     Route: 048

REACTIONS (3)
  - Toxicity to various agents [Fatal]
  - Off label use [Unknown]
  - Product prescribing error [Unknown]
